FAERS Safety Report 20323064 (Version 1)
Quarter: 2022Q1

REPORT INFORMATION
  Report Type: Spontaneous
  Country: US (occurrence: None)
  Receive Date: 20220111
  Receipt Date: 20220111
  Transmission Date: 20220423
  Serious: No
  Sender: FDA-Public Use
  Company Number: None

PATIENT
  Age: 26 Year
  Sex: Female
  Weight: 78.75 kg

DRUGS (13)
  1. METHYLPHENIDATE HYDROCHLORIDE [Suspect]
     Active Substance: METHYLPHENIDATE HYDROCHLORIDE
     Indication: Attention deficit hyperactivity disorder
     Route: 048
  2. SERTRALINE [Concomitant]
     Active Substance: SERTRALINE HYDROCHLORIDE
  3. Nuvaryng [Concomitant]
  4. AZELAIC ACID [Concomitant]
     Active Substance: AZELAIC ACID
  5. KETOCONAZOLE [Concomitant]
     Active Substance: KETOCONAZOLE
  6. CETIRIZINE [Concomitant]
     Active Substance: CETIRIZINE HYDROCHLORIDE
  7. VITAMIN D [Concomitant]
     Active Substance: VITAMIN D NOS
  8. VITAMIN B12 [Concomitant]
     Active Substance: CYANOCOBALAMIN
  9. CALCIUM [Concomitant]
     Active Substance: CALCIUM
  10. IRON [Concomitant]
     Active Substance: IRON
  11. ZINC [Concomitant]
     Active Substance: ZINC
  12. IODINE [Concomitant]
     Active Substance: IODINE
  13. Omega 3s [Concomitant]

REACTIONS (6)
  - Product substitution issue [None]
  - Therapeutic product effect variable [None]
  - Drug ineffective [None]
  - Disturbance in attention [None]
  - Somnolence [None]
  - Depressed level of consciousness [None]

NARRATIVE: CASE EVENT DATE: 20220110
